FAERS Safety Report 18585399 (Version 1)
Quarter: 2020Q4

REPORT INFORMATION
  Report Type: Spontaneous
  Country: CH (occurrence: CH)
  Receive Date: 20201207
  Receipt Date: 20201207
  Transmission Date: 20210114
  Serious: Yes (Other)
  Sender: FDA-Public Use
  Company Number: CH-PFIZER INC-2020475844

PATIENT
  Age: 75 Year
  Sex: Female

DRUGS (20)
  1. TORASEMIDE SANDOZ [Suspect]
     Active Substance: TORSEMIDE
     Dosage: UNK, (10 MG 1X / D FROM 16OCT TO 06NOV, VARIABLE DOSES 1X / D FROM 12NOV IN PROGRESS)
     Route: 048
     Dates: start: 20201112
  2. CORDARONE [Concomitant]
     Active Substance: AMIODARONE HYDROCHLORIDE
     Indication: ARRHYTHMIA
     Dosage: 100 MG, 1X/DAY
     Route: 048
  3. NOVORAPID [Concomitant]
     Active Substance: INSULIN ASPART
     Indication: DIABETES MELLITUS
     Dosage: UNK (VARIABLED DOSES BASED ON GLYCEMIA)
     Route: 058
  4. ALDACTONE [Suspect]
     Active Substance: SPIRONOLACTONE
     Dosage: 50 MG, 1X/DAY
     Route: 048
     Dates: start: 20201101
  5. MORPHINE HCL [Suspect]
     Active Substance: MORPHINE HYDROCHLORIDE
     Dosage: 6 MG
     Route: 058
     Dates: start: 20201029, end: 2020
  6. MORPHINE HCL [Suspect]
     Active Substance: MORPHINE HYDROCHLORIDE
     Dosage: 15 MG (6X/DAY)
     Route: 058
     Dates: start: 20201104
  7. METFORMIN [Concomitant]
     Active Substance: METFORMIN HYDROCHLORIDE
     Indication: DIABETES MELLITUS
     Dosage: 1 G, 2X/DAY
     Route: 048
  8. FLOXAPEN [FLUCLOXACILLIN SODIUM] [Suspect]
     Active Substance: FLUCLOXACILLIN SODIUM
     Indication: STAPHYLOCOCCAL BACTERAEMIA
     Dosage: 2 G (6X/DAY)
     Route: 042
     Dates: start: 20201015, end: 20201111
  9. TOUJEO [Concomitant]
     Active Substance: INSULIN GLARGINE
     Indication: DIABETES MELLITUS
     Dosage: UNK UNK, 1X/DAY (34-42 UI)
     Route: 058
  10. LASIX [Suspect]
     Active Substance: FUROSEMIDE
     Dosage: 10 MG, SINGLE
     Route: 042
     Dates: start: 20201103, end: 202011
  11. TORASEMIDE SANDOZ [Suspect]
     Active Substance: TORSEMIDE
     Indication: OEDEMA
     Dosage: 10 MG, 1X/DAY
     Route: 048
     Dates: start: 20201016, end: 20201106
  12. MORPHINE HCL [Suspect]
     Active Substance: MORPHINE HYDROCHLORIDE
     Indication: PAIN
     Dosage: UNK (3-4 MG)
     Route: 042
     Dates: start: 20201028, end: 2020
  13. APIDRA [Concomitant]
     Active Substance: INSULIN GLULISINE
     Indication: DIABETES MELLITUS
     Dosage: 6 IU, 3X/DAY
     Route: 058
  14. LYRICA [Suspect]
     Active Substance: PREGABALIN
     Indication: PAIN
     Dosage: UNK (VARIABLE DOSES)
     Route: 048
     Dates: start: 20201030
  15. LASIX [Suspect]
     Active Substance: FUROSEMIDE
     Dosage: UNK ((20 MG IN A SINGLE DOSE ON 15OCT2020, 10 MG IN A SINGLE DOSE ON 3NOV2020, VARIABLE DOSES FROM 5
     Route: 042
     Dates: start: 20201105, end: 20201110
  16. ASPIRIN CARDIO [Concomitant]
     Active Substance: ASPIRIN
     Indication: PLATELET AGGREGATION INHIBITION
     Dosage: 100 MG, 1X/DAY
     Route: 048
  17. ATORVASTATINE SANDOZ [Concomitant]
     Active Substance: ATORVASTATIN
     Indication: HYPERCHOLESTEROLAEMIA
     Dosage: 40 MG, 1X/DAY
     Route: 048
  18. ALDACTONE [Suspect]
     Active Substance: SPIRONOLACTONE
     Indication: OEDEMA
     Dosage: 50 MG, SINGLE
     Route: 048
     Dates: start: 20201031, end: 2020
  19. LASIX [Suspect]
     Active Substance: FUROSEMIDE
     Indication: GENERALISED OEDEMA
     Dosage: 20 MG, SINGLE
     Route: 042
     Dates: start: 20201015, end: 20201110
  20. IRBESARTAN SANDOZ [Concomitant]
     Active Substance: IRBESARTAN
     Indication: HYPERTENSION
     Dosage: 300 MG, 1X/DAY
     Route: 048

REACTIONS (1)
  - Hypersensitivity vasculitis [Recovering/Resolving]

NARRATIVE: CASE EVENT DATE: 20201110
